FAERS Safety Report 21183043 (Version 7)
Quarter: 2023Q1

REPORT INFORMATION
  Report Type: Report from Study
  Country: CO (occurrence: CO)
  Receive Date: 20220808
  Receipt Date: 20230314
  Transmission Date: 20230418
  Serious: Yes (Hospitalization)
  Sender: FDA-Public Use
  Company Number: CO-NOVARTISPH-NVSC2022CO178167

PATIENT
  Sex: Female

DRUGS (4)
  1. COSENTYX [Suspect]
     Active Substance: SECUKINUMAB
     Indication: Ankylosing spondylitis
     Dosage: 300 MG, QMO
     Route: 058
  2. COSENTYX [Suspect]
     Active Substance: SECUKINUMAB
     Dosage: UNK, ON 08 AUG (UNSPECIFIED YEAR)
     Route: 065
  3. COSENTYX [Suspect]
     Active Substance: SECUKINUMAB
     Dosage: 300 MG, QW
     Route: 058
  4. COSENTYX [Suspect]
     Active Substance: SECUKINUMAB
     Dosage: UNK, ON UNKNOWN DATE JUL (UNSPECIFED YEAR)
     Route: 065

REACTIONS (8)
  - Localised infection [Unknown]
  - Splinter [Unknown]
  - Illness [Unknown]
  - Influenza [Unknown]
  - Joint swelling [Unknown]
  - Viral infection [Unknown]
  - Infection [Unknown]
  - Inappropriate schedule of product administration [Unknown]
